FAERS Safety Report 24344350 (Version 1)
Quarter: 2024Q3

REPORT INFORMATION
  Report Type: Spontaneous
  Country: US (occurrence: US)
  Receive Date: 20240920
  Receipt Date: 20240920
  Transmission Date: 20241017
  Serious: No
  Sender: BRAEBURN PHARMACEUTICALS
  Company Number: US-BRAEBURN-US-BRA-24-000715

PATIENT
  Age: 46 Year
  Sex: Male

DRUGS (2)
  1. BRIXADI [Suspect]
     Active Substance: BUPRENORPHINE
     Indication: Substance use disorder
     Dosage: 24 MILLIGRAM, WEEKLY, FOR 3 WEEKS
     Route: 065
     Dates: start: 20240627
  2. BRIXADI [Suspect]
     Active Substance: BUPRENORPHINE
     Dosage: 96 MILLIGRAM, MONTHLY
     Route: 058
     Dates: start: 20240717

REACTIONS (1)
  - Peripheral swelling [Recovering/Resolving]

NARRATIVE: CASE EVENT DATE: 20240730
